FAERS Safety Report 5904510-7 (Version None)
Quarter: 2008Q4

REPORT INFORMATION
  Report Type: 
  Country: None (occurrence: None)
  Receive Date: 20081001
  Receipt Date: 20080929
  Transmission Date: 20090506
  Serious: Yes (Other)
  Sender: FDA-Public Use
  Company Number: US-ELI_LILLY_AND_COMPANY-US200711004875

PATIENT
  Sex: Female

DRUGS (5)
  1. HUMALOG [Suspect]
     Route: 058
     Dates: start: 20071119
  2. HUMULIN N [Suspect]
     Dates: start: 20071119
  3. SYNTHROID [Concomitant]
     Dosage: 0.15 UNK, UNK
  4. METFORMIN HCL [Concomitant]
  5. PRENATAL VITAMINS /01549301/ [Concomitant]

REACTIONS (3)
  - ABORTION SPONTANEOUS [None]
  - BLOOD GLUCOSE INCREASED [None]
  - DRUG EXPOSURE DURING PREGNANCY [None]
